FAERS Safety Report 11329201 (Version 2)
Quarter: 2015Q3

REPORT INFORMATION
  Report Type: Report from Study
  Country: US (occurrence: US)
  Receive Date: 20150803
  Receipt Date: 20150831
  Transmission Date: 20151125
  Serious: Yes (Hospitalization, Other)
  Sender: FDA-Public Use
  Company Number: US-ROCHE-1573541

PATIENT
  Age: 75 Year
  Sex: Female
  Weight: 104.42 kg

DRUGS (4)
  1. LOVENOX [Concomitant]
     Active Substance: ENOXAPARIN SODIUM
     Indication: ANTICOAGULANT THERAPY
     Route: 058
     Dates: start: 201507
  2. TAXOL [Concomitant]
     Active Substance: PACLITAXEL
     Indication: BREAST CANCER
     Route: 042
  3. LEVOTHYROXINE. [Concomitant]
     Active Substance: LEVOTHYROXINE
     Route: 048
  4. AVASTIN [Suspect]
     Active Substance: BEVACIZUMAB
     Indication: OVARIAN CANCER
     Dosage: HAS HAD HER SECOND DOSE
     Route: 042
     Dates: start: 20150501, end: 20150806

REACTIONS (8)
  - Glossodynia [Not Recovered/Not Resolved]
  - Ageusia [Not Recovered/Not Resolved]
  - Mallory-Weiss syndrome [Not Recovered/Not Resolved]
  - Arthralgia [Not Recovered/Not Resolved]
  - Abasia [Unknown]
  - Pain in extremity [Unknown]
  - Thrombosis [Unknown]
  - Aphonia [Not Recovered/Not Resolved]

NARRATIVE: CASE EVENT DATE: 20150503
